FAERS Safety Report 20106359 (Version 1)
Quarter: 2021Q4

REPORT INFORMATION
  Report Type: Report from Study
  Country: GB (occurrence: GB)
  Receive Date: 20211124
  Receipt Date: 20211124
  Transmission Date: 20220303
  Serious: Yes (Death)
  Sender: FDA-Public Use
  Company Number: GB-LEO Pharma-339791

PATIENT
  Age: 35 Year
  Sex: Female

DRUGS (1)
  1. BRODALUMAB [Suspect]
     Active Substance: BRODALUMAB
     Indication: Psoriasis
     Dosage: 210MG WEEK 0, 1, 2 AND THEN EVERY TWO WEEKS
     Route: 058
     Dates: start: 20210629

REACTIONS (1)
  - Death [Fatal]
